FAERS Safety Report 4377635-8 (Version None)
Quarter: 2004Q2

REPORT INFORMATION
  Report Type: 
  Country: None (occurrence: None)
  Receive Date: 20040615
  Receipt Date: 20040405
  Transmission Date: 20050107
  Serious: Yes (Other)
  Sender: FDA-Public Use
  Company Number: PHBS2004BR04612

PATIENT
  Age: 51 Year
  Sex: Female
  Weight: 68 kg

DRUGS (1)
  1. LESCOL [Suspect]
     Indication: BLOOD CHOLESTEROL INCREASED
     Dosage: 40 MG, ONCE/SINGLE
     Route: 048
     Dates: start: 20040101, end: 20040101

REACTIONS (3)
  - INJURY ASPHYXIATION [None]
  - LARYNGEAL OEDEMA [None]
  - PHARMACEUTICAL PRODUCT COMPLAINT [None]
